FAERS Safety Report 6380129-1 (Version None)
Quarter: 2009Q3

REPORT INFORMATION
  Report Type: 
  Country: None (occurrence: None)
  Receive Date: 20090929
  Receipt Date: 20090922
  Transmission Date: 20100115
  Serious: Yes (Death, Life-Threatening, Hospitalization)
  Sender: FDA-Public Use
  Company Number: US-CELGENEUS-163-20785-09091745

PATIENT
  Sex: Male

DRUGS (8)
  1. THALOMID [Suspect]
     Route: 048
     Dates: start: 20080722, end: 20081212
  2. TEMODAR [Concomitant]
     Route: 065
     Dates: start: 20080722, end: 20081212
  3. ASPIRIN [Concomitant]
     Route: 065
  4. WELCHOL [Concomitant]
     Route: 065
  5. TRICOR [Concomitant]
     Indication: DRUG USE FOR UNKNOWN INDICATION
     Route: 065
  6. AVAPRO [Concomitant]
     Indication: HYPERTENSION
     Route: 065
  7. NABUMETONE [Concomitant]
     Indication: DRUG USE FOR UNKNOWN INDICATION
     Route: 065
  8. RANITIDINE [Concomitant]
     Indication: DRUG USE FOR UNKNOWN INDICATION
     Route: 065

REACTIONS (5)
  - CARDIOPULMONARY FAILURE [None]
  - MALIGNANT NEOPLASM PROGRESSION [None]
  - MULTIPLE MYELOMA [None]
  - PARAPLEGIA [None]
  - SPINAL CORD COMPRESSION [None]
